FAERS Safety Report 9305582 (Version 1)
Quarter: 2013Q2

REPORT INFORMATION
  Report Type: Report from Study
  Country: CA (occurrence: CA)
  Receive Date: 20130523
  Receipt Date: 20130523
  Transmission Date: 20140414
  Serious: Yes (Hospitalization)
  Sender: FDA-Public Use
  Company Number: CA-JNJFOC-20130511756

PATIENT
  Age: 22 Year
  Sex: Male
  Weight: 65 kg

DRUGS (8)
  1. REMICADE [Suspect]
     Indication: CROHN^S DISEASE
     Route: 042
     Dates: start: 20130209
  2. MULTIVITAMINS [Concomitant]
     Route: 065
  3. VITAMIN C [Concomitant]
     Route: 065
  4. VITAMIN D [Concomitant]
     Route: 065
  5. LOPERAMIDE [Concomitant]
     Route: 065
  6. RABEPRAZOLE [Concomitant]
     Route: 065
  7. FERROMAX [Concomitant]
     Route: 065
  8. CALCIUM CARBONATE [Concomitant]
     Route: 065

REACTIONS (1)
  - Haemorrhage [Recovering/Resolving]
